FAERS Safety Report 8892568 (Version 1)
Quarter: 2012Q4

REPORT INFORMATION
  Report Type: 
  Country: US (occurrence: US)
  Receive Date: 20121107
  Receipt Date: 20121107
  Transmission Date: 20130627
  Serious: No
  Sender: FDA-Public Use
  Company Number: US-AMGEN-USASP2011054621

PATIENT
  Age: 56 Year
  Sex: Male

DRUGS (2)
  1. ENBREL [Suspect]
     Indication: PRODUCT USED FOR UNKNOWN INDICATION
     Dosage: 50 mg, UNK
  2. LIPITOR [Concomitant]
     Dosage: 10 mg, UNK

REACTIONS (1)
  - Weight increased [Unknown]
